FAERS Safety Report 8936885 (Version 1)
Quarter: 2012Q4

REPORT INFORMATION
  Report Type: 
  Country: JP (occurrence: JP)
  Receive Date: 20121130
  Receipt Date: 20121130
  Transmission Date: 20130627
  Serious: Yes (Hospitalization)
  Sender: FDA-Public Use
  Company Number: PHHY2012JP087053

PATIENT
  Sex: Male

DRUGS (4)
  1. DIOVAN [Suspect]
     Indication: HYPERTENSION
     Dosage: 80 mg, daily
     Route: 048
     Dates: start: 20121001, end: 20121002
  2. DIOVAN [Suspect]
     Dosage: 80 mg, daily
     Route: 048
     Dates: start: 20121010
  3. FLUITRAN [Concomitant]
     Dosage: 1 mg, UNK
     Route: 048
  4. ITOROL [Concomitant]
     Dosage: 20 mg, UNK
     Route: 048

REACTIONS (1)
  - Hypoglycaemia [Not Recovered/Not Resolved]
